FAERS Safety Report 19905050 (Version 1)
Quarter: 2021Q3

REPORT INFORMATION
  Report Type: Report from Study
  Country: US (occurrence: US)
  Receive Date: 20210930
  Receipt Date: 20210930
  Transmission Date: 20211014
  Serious: Yes (Hospitalization)
  Sender: FDA-Public Use
  Company Number: US-SERVIER-S21010451

PATIENT

DRUGS (14)
  1. TN UNSPECIFIED [MERCAPTOPURINE] [Suspect]
     Active Substance: MERCAPTOPURINE
     Indication: ACUTE LYMPHOCYTIC LEUKAEMIA
     Dosage: 200 MG X4 DAYS/WEEK, 175 MG X3 DAYS/WEEK, ON DAYS 1?84
     Route: 048
     Dates: start: 20210811, end: 20210830
  2. TN UNSPECIFIED [Concomitant]
     Dosage: 2 MG ON DAYS 1, 11, 21, 31, 41
     Route: 042
     Dates: start: 20210616
  3. TN UNSPECIFIED [Concomitant]
     Dosage: 2 MG ON DAYS 1,29 AND 57
     Route: 042
     Dates: start: 20210811
  4. TN UNSPECIFIED [Concomitant]
     Indication: ACUTE LYMPHOCYTIC LEUKAEMIA
     Dosage: 50 MG, BID, ON DAYS 1?5, 29?33 AND 57?61
     Route: 048
     Dates: start: 20210811
  5. TN UNSPECIFIED [METHOTREXATE] [Suspect]
     Active Substance: METHOTREXATE
     Dosage: 15 MG ONCE ON DAYS 1, 31 OF IM2
     Route: 037
     Dates: start: 20210528
  6. TN UNSPECIFIED [METHOTREXATE] [Suspect]
     Active Substance: METHOTREXATE
     Dosage: 50 MG, 1X/WEEK
     Route: 048
     Dates: start: 20210913
  7. TN UNSPECIFIED [METHOTREXATE] [Suspect]
     Active Substance: METHOTREXATE
     Dosage: 100 MG/M2 ONCE ON DAYS, 1, 11, 21,31, 41 OF IM2
     Route: 042
     Dates: start: 20210528, end: 20210607
  8. TN UNSPECIFIED [METHOTREXATE] [Suspect]
     Active Substance: METHOTREXATE
     Dosage: 15 MG, DAY 1 AND C1D29
     Route: 037
  9. TN UNSPECIFIED [MERCAPTOPURINE] [Suspect]
     Active Substance: MERCAPTOPURINE
     Dosage: 200 MG X4 DAYS/WEEK, 175 MG X3 DAYS/WEEK, ON DAYS 1?84
     Route: 048
     Dates: start: 20210831
  10. TN UNSPECIFIED [Concomitant]
     Indication: ACUTE LYMPHOCYTIC LEUKAEMIA
     Dosage: 50 MG, BID ON DAYS 1?10, 21?30 AND 41?50
     Route: 048
     Dates: start: 20210528, end: 20210604
  11. TN UNSPECIFIED [Concomitant]
     Dosage: 100 MG, BID ON DAYS 1?14, 29?42 AND 57?70
     Route: 048
     Dates: start: 20210811
  12. TN UNSPECIFIED [Concomitant]
     Indication: ACUTE LYMPHOCYTIC LEUKAEMIA
     Dosage: 2 MG ON DAYS 1, 11, 21, 31, 41
     Route: 042
     Dates: start: 20210528, end: 20210607
  13. PEGASPARGASE [Suspect]
     Active Substance: PEGASPARGASE
     Indication: ACUTE LYMPHOCYTIC LEUKAEMIA
     Dosage: 2500 IU/M2 ON DAYS 2 AND 22 OF IM2
     Route: 042
     Dates: start: 20210529
  14. TN UNSPECIFIED [METHOTREXATE] [Suspect]
     Active Substance: METHOTREXATE
     Indication: ACUTE LYMPHOCYTIC LEUKAEMIA
     Dosage: 50 MG, 1X/WEEK
     Route: 048
     Dates: start: 20210811, end: 20210830

REACTIONS (1)
  - Anorectal infection [Recovered/Resolved]

NARRATIVE: CASE EVENT DATE: 20210830
